FAERS Safety Report 10129967 (Version 1)
Quarter: 2014Q2

REPORT INFORMATION
  Report Type: Spontaneous
  Country: US (occurrence: None)
  Receive Date: 20140424
  Receipt Date: 20140424
  Transmission Date: 20141212
  Serious: Yes (Hospitalization)
  Sender: FDA-Public Use
  Company Number: None

PATIENT
  Age: 71 Year
  Sex: Male
  Weight: 77.6 kg

DRUGS (8)
  1. FOLFIRINOX [Suspect]
     Indication: PANCREATIC CARCINOMA
     Route: 042
     Dates: start: 20140410
  2. PF-04136309 [Suspect]
     Indication: PANCREATIC CARCINOMA
     Route: 048
     Dates: start: 20140410
  3. ATORVASTATIN CALCIUM [Concomitant]
  4. GLIMERPIRIDE [Concomitant]
  5. LISINOPRIL [Concomitant]
  6. METFORMIN [Concomitant]
  7. ZOFRAN [Concomitant]
  8. ZENPEP [Concomitant]

REACTIONS (4)
  - Confusional state [None]
  - Condition aggravated [None]
  - Asthenia [None]
  - Febrile neutropenia [None]
